FAERS Safety Report 17460888 (Version 1)
Quarter: 2020Q3

REPORT INFORMATION
  Report Type: Spontaneous
  Country: DE (occurrence: DE)
  Receive Date: 20200226
  Receipt Date: 20200226
  Transmission Date: 20201104
  Serious: Yes (Hospitalization)
  Sender: FDA-Public Use
  Company Number: DE-SA-2020SA045623

PATIENT
  Age: 53 Year
  Sex: Female
  Weight: 59 kg

DRUGS (5)
  1. OPIPRAMOL [Suspect]
     Active Substance: OPIPRAMOL
     Dosage: 50 MG, 1?0?1?0
  2. THOMAPYRIN [ACETYLSALICYLIC ACID;CAFFEINE;PARACETAMOL] [Suspect]
     Active Substance: ACETAMINOPHEN\ASPIRIN\CAFFEINE
     Dosage: 7X TO 8X
  3. ETORICOXIB. [Suspect]
     Active Substance: ETORICOXIB
     Dosage: UNK
  4. VIGANTOLETTEN [Concomitant]
     Active Substance: CHOLECALCIFEROL
     Dosage: UNK
  5. JODID [Concomitant]
     Active Substance: IODINE
     Dosage: 200 ?G, 1?0?0?0

REACTIONS (2)
  - Jaundice [Unknown]
  - Medication error [Unknown]

NARRATIVE: CASE EVENT DATE: 20191020
